FAERS Safety Report 6118787-9 (Version None)
Quarter: 2009Q1

REPORT INFORMATION
  Report Type: 
  Country: None (occurrence: None)
  Receive Date: 20090315
  Receipt Date: 20090310
  Transmission Date: 20090719
  Serious: Yes (Other)
  Sender: FDA-Public Use
  Company Number: US-ASTRAZENECA-2008UW07091

PATIENT
  Age: 60 Year
  Sex: Female
  Weight: 78.9 kg

DRUGS (7)
  1. CRESTOR [Suspect]
     Indication: BLOOD CHOLESTEROL
     Route: 048
     Dates: start: 20080101
  2. FAMCICLOVIR [Concomitant]
  3. GLUCOSAMINE [Concomitant]
  4. VITAMINS [Concomitant]
  5. EVISTA [Concomitant]
  6. CENTRUM SILVER [Concomitant]
  7. THERAGRAM M [Concomitant]

REACTIONS (3)
  - ABDOMINAL DISCOMFORT [None]
  - ARTHRITIS [None]
  - PLANTAR FASCIITIS [None]
